FAERS Safety Report 15309631 (Version 3)
Quarter: 2018Q4

REPORT INFORMATION
  Report Type: Report from Study
  Country: None (occurrence: AU)
  Receive Date: 20180823
  Receipt Date: 20181127
  Transmission Date: 20190204
  Serious: Yes (Other)
  Sender: FDA-Public Use
  Company Number: AU-ABBVIE-18K-008-2458834-00

PATIENT
  Sex: Female

DRUGS (1)
  1. HUMIRA [Suspect]
     Active Substance: ADALIMUMAB
     Indication: HIDRADENITIS
     Route: 058

REACTIONS (5)
  - Exposure during pregnancy [Unknown]
  - Hidradenitis [Not Recovered/Not Resolved]
  - Abortion spontaneous [Unknown]
  - Adjustment disorder with depressed mood [Recovering/Resolving]
  - Accident [Unknown]
